FAERS Safety Report 7364619-0 (Version None)
Quarter: 2011Q1

REPORT INFORMATION
  Report Type: 
  Country: None (occurrence: None)
  Receive Date: 20110321
  Receipt Date: 20110316
  Transmission Date: 20110831
  Serious: Yes (Life-Threatening, Other)
  Sender: FDA-Public Use
  Company Number: DE-CUBIST-2011S1000151

PATIENT
  Age: 67 Year
  Sex: Female
  Weight: 64 kg

DRUGS (6)
  1. PIPERACILLIN [Concomitant]
     Indication: PRODUCT USED FOR UNKNOWN INDICATION
  2. MEROPENEM [Concomitant]
     Indication: PRODUCT USED FOR UNKNOWN INDICATION
     Dates: start: 20090615
  3. CUBICIN [Suspect]
     Indication: INFECTION
     Dates: start: 20090612, end: 20090617
  4. POSACONAZOLE [Concomitant]
     Indication: PRODUCT USED FOR UNKNOWN INDICATION
     Dates: start: 20090617
  5. CYCLOSPORINE [Concomitant]
     Indication: PRODUCT USED FOR UNKNOWN INDICATION
     Dates: start: 20090615
  6. VANCOMYCIN [Concomitant]
     Indication: PRODUCT USED FOR UNKNOWN INDICATION

REACTIONS (2)
  - RESPIRATORY FAILURE [None]
  - BLOOD CREATINE PHOSPHOKINASE INCREASED [None]
